FAERS Safety Report 7151608-4 (Version None)
Quarter: 2010Q4

REPORT INFORMATION
  Report Type: 
  Country: None (occurrence: None)
  Receive Date: 20101210
  Receipt Date: 20101203
  Transmission Date: 20110411
  Serious: Yes (Hospitalization)
  Sender: FDA-Public Use
  Company Number: US-US-EMD SERONO, INC.-7030763

PATIENT
  Sex: Female

DRUGS (1)
  1. REBIF [Suspect]
     Indication: PRODUCT USED FOR UNKNOWN INDICATION
     Route: 058
     Dates: start: 20100819, end: 20100101

REACTIONS (5)
  - DEHYDRATION [None]
  - GASTROINTESTINAL DISORDER [None]
  - LABORATORY TEST ABNORMAL [None]
  - MALAISE [None]
  - NAUSEA [None]
